FAERS Safety Report 15568330 (Version 1)
Quarter: 2018Q4

REPORT INFORMATION
  Report Type: Spontaneous
  Country: FR (occurrence: FR)
  Receive Date: 20181031
  Receipt Date: 20181031
  Transmission Date: 20190205
  Serious: Yes (Other)
  Sender: FDA-Public Use
  Company Number: FR-BRISTOL-MYERS SQUIBB COMPANY-BMS-2018-099115

PATIENT
  Age: 62 Year
  Sex: Female
  Weight: 50 kg

DRUGS (2)
  1. KEYTRUDA [Suspect]
     Active Substance: PEMBROLIZUMAB
     Indication: BRONCHIAL CARCINOMA
     Dosage: 2 MG/KG, UNK
     Route: 041
     Dates: start: 20171129, end: 20180330
  2. OPDIVO [Suspect]
     Active Substance: NIVOLUMAB
     Indication: BRONCHIAL CARCINOMA
     Dosage: 240 MG, UNK
     Route: 041
     Dates: start: 20170517, end: 20170804

REACTIONS (3)
  - Cheilitis [Recovering/Resolving]
  - Rash papular [Recovering/Resolving]
  - Dermatitis bullous [Recovering/Resolving]

NARRATIVE: CASE EVENT DATE: 20170815
